FAERS Safety Report 17012335 (Version 1)
Quarter: 2019Q4

REPORT INFORMATION
  Report Type: Spontaneous
  Country: US (occurrence: US)
  Receive Date: 20191108
  Receipt Date: 20191108
  Transmission Date: 20200122
  Serious: Yes (Hospitalization)
  Sender: FDA-Public Use
  Company Number: US-TEVA-2019-US-1133794

PATIENT

DRUGS (2)
  1. DEXTROAMPHETAMINE SULFATE TEVA [Suspect]
     Active Substance: DEXTROAMPHETAMINE SULFATE
     Dosage: 5-10 MG FOR 5 DAYS
     Route: 065
  2. DEXTROAMPHETAMINE SULFATE TEVA [Suspect]
     Active Substance: DEXTROAMPHETAMINE SULFATE
     Dosage: 4 YEARS BACK
     Route: 065

REACTIONS (12)
  - Blood pressure increased [Unknown]
  - Abdominal rigidity [Unknown]
  - Oedema [Unknown]
  - Headache [Unknown]
  - Abdominal distension [Unknown]
  - Abdominal discomfort [Unknown]
  - Hyperhidrosis [Unknown]
  - Adverse event [Unknown]
  - Abdominal pain lower [Unknown]
  - Fatigue [Unknown]
  - Product substitution issue [Unknown]
  - Muscle spasms [Unknown]
